FAERS Safety Report 7061724-3 (Version None)
Quarter: 2010Q4

REPORT INFORMATION
  Report Type: 
  Country: None (occurrence: None)
  Receive Date: 20101026
  Receipt Date: 20101015
  Transmission Date: 20110411
  Serious: Yes (Congenital Anomaly, Other)
  Sender: FDA-Public Use
  Company Number: FR-ROCHE-734500

PATIENT

DRUGS (1)
  1. TAMIFLU [Suspect]
     Route: 064

REACTIONS (4)
  - CAMPTODACTYLY CONGENITAL [None]
  - CONGENITAL CENTRAL NERVOUS SYSTEM ANOMALY [None]
  - FOETAL GROWTH RESTRICTION [None]
  - OESOPHAGEAL ATRESIA [None]
